FAERS Safety Report 6025362-3 (Version None)
Quarter: 2008Q4

REPORT INFORMATION
  Report Type: 
  Country: None (occurrence: None)
  Receive Date: 20081229
  Receipt Date: 20081229
  Transmission Date: 20090506
  Serious: No
  Sender: FDA-Public Use
  Company Number: None

PATIENT

DRUGS (1)
  1. REGLAN [Suspect]

REACTIONS (7)
  - ABNORMAL BEHAVIOUR [None]
  - CONFUSIONAL STATE [None]
  - DRY MOUTH [None]
  - HALLUCINATION [None]
  - LETHARGY [None]
  - RESTLESSNESS [None]
  - TREMOR [None]
